FAERS Safety Report 7286184-9 (Version None)
Quarter: 2011Q1

REPORT INFORMATION
  Report Type: 
  Country: None (occurrence: None)
  Receive Date: 20110210
  Receipt Date: 20110128
  Transmission Date: 20110831
  Serious: Yes (Hospitalization, Other)
  Sender: FDA-Public Use
  Company Number: PHHY2010CA66553

PATIENT
  Sex: Male

DRUGS (1)
  1. SANDOSTATIN LAR [Suspect]
     Indication: SUBILEUS
     Dosage: 20 MG, QMO
     Route: 030
     Dates: start: 20100505, end: 20101104

REACTIONS (6)
  - ASTHENIA [None]
  - PAIN [None]
  - WEIGHT DECREASED [None]
  - PULMONARY OEDEMA [None]
  - TERMINAL STATE [None]
  - PALLIATIVE CARE [None]
